FAERS Safety Report 17565182 (Version 1)
Quarter: 2020Q1

REPORT INFORMATION
  Report Type: Spontaneous
  Country: IT (occurrence: IT)
  Receive Date: 20200320
  Receipt Date: 20200320
  Transmission Date: 20200409
  Serious: Yes (Other)
  Sender: FDA-Public Use
  Company Number: NVSC2020IT079258

PATIENT
  Age: 61 Year
  Sex: Female

DRUGS (4)
  1. PARACETAMOL [Suspect]
     Active Substance: ACETAMINOPHEN
     Indication: AUTOINFLAMMATORY DISEASE
     Dosage: UNK
     Route: 065
  2. LYRICA [Suspect]
     Active Substance: PREGABALIN
     Indication: AUTOINFLAMMATORY DISEASE
     Dosage: UNK
     Route: 065
  3. COLCHICINE. [Suspect]
     Active Substance: COLCHICINE
     Indication: AUTOINFLAMMATORY DISEASE
     Dosage: UNK
     Route: 065
  4. DELTACORTENE [Suspect]
     Active Substance: PREDNISONE
     Indication: AUTOINFLAMMATORY DISEASE
     Dosage: UNKNOWN
     Route: 065

REACTIONS (4)
  - Hepatomegaly [Unknown]
  - Liver injury [Unknown]
  - Hepatic steatosis [Unknown]
  - Hypertransaminasaemia [Unknown]
